FAERS Safety Report 13972546 (Version 2)
Quarter: 2017Q4

REPORT INFORMATION
  Report Type: Report from Study
  Country: US (occurrence: US)
  Receive Date: 20170914
  Receipt Date: 20171226
  Transmission Date: 20180321
  Serious: Yes (Death)
  Sender: FDA-Public Use
  Company Number: US-ASTELLAS-2017US000043

PATIENT
  Sex: Male

DRUGS (1)
  1. ENZALUTAMIDE [Suspect]
     Active Substance: ENZALUTAMIDE
     Indication: HORMONE-REFRACTORY PROSTATE CANCER
     Route: 048

REACTIONS (2)
  - Malaise [Unknown]
  - Death [Fatal]
